FAERS Safety Report 6031105-X (Version None)
Quarter: 2009Q1

REPORT INFORMATION
  Report Type: 
  Country: None (occurrence: None)
  Receive Date: 20090108
  Receipt Date: 20081230
  Transmission Date: 20090719
  Serious: Yes (Other)
  Sender: FDA-Public Use
  Company Number: EG-PFIZER INC-2008091431

PATIENT

DRUGS (1)
  1. SULPERAZON [Suspect]
     Dosage: 1.5 MG, 2X/DAY
     Route: 042
     Dates: start: 20081015, end: 20081017

REACTIONS (3)
  - DRUG INEFFECTIVE [None]
  - INCISION SITE INFECTION [None]
  - PROCEDURAL SITE REACTION [None]
